FAERS Safety Report 9409532 (Version 2)
Quarter: 2013Q3

REPORT INFORMATION
  Report Type: Spontaneous
  Country: US (occurrence: None)
  Receive Date: 20130716
  Receipt Date: 20130813
  Transmission Date: 20140515
  Serious: Yes (Hospitalization)
  Sender: FDA-Public Use
  Company Number: ACO_30570_2012

PATIENT
  Age: 59 Year
  Sex: Male
  Weight: 77.1 kg

DRUGS (4)
  1. AMPYRA [Suspect]
     Indication: GAIT DISTURBANCE
     Route: 048
     Dates: start: 201102, end: 2012
  2. AVONEX (INTERFERON BETA-1A) [Suspect]
     Indication: PRODUCT USED FOR UNKNOWN INDICATION
  3. LIPITOR [Concomitant]
  4. WARFARIN  SODIUM (WARFARIN SODIUM) [Concomitant]

REACTIONS (7)
  - Pulmonary embolism [None]
  - Influenza [None]
  - Substance use [None]
  - Dizziness [None]
  - Initial insomnia [None]
  - Middle insomnia [None]
  - Inappropriate schedule of drug administration [None]
